FAERS Safety Report 25110354 (Version 3)
Quarter: 2025Q3

REPORT INFORMATION
  Report Type: Spontaneous
  Country: US (occurrence: US)
  Receive Date: 20250324
  Receipt Date: 20250708
  Transmission Date: 20251021
  Serious: Yes (Other)
  Sender: NOVO NORDISK
  Company Number: US-NOVOPROD-1389614

PATIENT
  Age: 52 Year
  Sex: Female

DRUGS (3)
  1. OZEMPIC [Suspect]
     Active Substance: SEMAGLUTIDE
     Indication: Type 2 diabetes mellitus
     Route: 058
     Dates: start: 2021
  2. OZEMPIC [Suspect]
     Active Substance: SEMAGLUTIDE
     Dosage: 2 MG, QW
     Route: 058
     Dates: end: 202309
  3. OZEMPIC [Suspect]
     Active Substance: SEMAGLUTIDE
     Dosage: 1 MG, QW
     Route: 058
     Dates: start: 202208, end: 2022

REACTIONS (14)
  - Suicide attempt [Unknown]
  - Intentional self-injury [Not Recovered/Not Resolved]
  - Suicidal ideation [Recovered/Resolved]
  - Craniocerebral injury [Not Recovered/Not Resolved]
  - Mental disorder [Not Recovered/Not Resolved]
  - Head injury [Unknown]
  - Hormone level abnormal [Unknown]
  - Fall [Unknown]
  - Brain fog [Recovered/Resolved]
  - Head discomfort [Recovered/Resolved]
  - Emotional disorder [Not Recovered/Not Resolved]
  - Decreased activity [Unknown]
  - Somatic symptom disorder [Not Recovered/Not Resolved]
  - Product use issue [Unknown]

NARRATIVE: CASE EVENT DATE: 20220801
